FAERS Safety Report 20770106 (Version 1)
Quarter: 2022Q2

REPORT INFORMATION
  Report Type: Spontaneous
  Country: US (occurrence: US)
  Receive Date: 20220429
  Receipt Date: 20220429
  Transmission Date: 20220720
  Serious: Yes (Hospitalization)
  Sender: FDA-Public Use
  Company Number: US-GW PHARMA-202203USGW01626

PATIENT
  Sex: Male

DRUGS (3)
  1. EPIDIOLEX [Suspect]
     Active Substance: CANNABIDIOL
     Indication: Lennox-Gastaut syndrome
     Dosage: 440 MILLIGRAM
     Dates: start: 202001
  2. EPIDIOLEX [Suspect]
     Active Substance: CANNABIDIOL
     Dosage: 4.4 MILLILITER
     Dates: start: 202203
  3. OXYCODONE [Concomitant]
     Active Substance: OXYCODONE
     Indication: Wound complication
     Dosage: UNK

REACTIONS (6)
  - Hospitalisation [Unknown]
  - Drug hypersensitivity [Unknown]
  - Wound complication [Unknown]
  - Rash [Unknown]
  - Swelling [Unknown]
  - Product container issue [Unknown]
